FAERS Safety Report 5879026-7 (Version None)
Quarter: 2008Q3

REPORT INFORMATION
  Report Type: 
  Country: None (occurrence: None)
  Receive Date: 20080912
  Receipt Date: 20080903
  Transmission Date: 20090109
  Serious: Yes (Other)
  Sender: FDA-Public Use
  Company Number: PHHY2008IL16818

PATIENT
  Age: 60 Year
  Sex: Male

DRUGS (4)
  1. GLEEVEC [Suspect]
     Indication: CHRONIC MYELOID LEUKAEMIA
     Dosage: 400 MG DAILY
     Route: 048
  2. ESCITALOPRAM [Concomitant]
  3. VITAMIN B [Concomitant]
  4. CALCIUM [Concomitant]

REACTIONS (10)
  - BLOOD TESTOSTERONE DECREASED [None]
  - BONE PAIN [None]
  - DIARRHOEA [None]
  - GYNAECOMASTIA [None]
  - LIBIDO DECREASED [None]
  - MEMORY IMPAIRMENT [None]
  - MUSCLE SPASMS [None]
  - PROSTATIC SPECIFIC ANTIGEN INCREASED [None]
  - VISUAL FIELD DEFECT [None]
  - VISUAL IMPAIRMENT [None]
